FAERS Safety Report 8289243-7 (Version None)
Quarter: 2012Q2

REPORT INFORMATION
  Report Type: 
  Country: None (occurrence: None)
  Receive Date: 20120417
  Receipt Date: 20120411
  Transmission Date: 20120825
  Serious: Yes (Hospitalization)
  Sender: FDA-Public Use
  Company Number: PHHO2012IT005763

PATIENT
  Sex: Male
  Weight: 70 kg

DRUGS (1)
  1. AFINITOR [Suspect]
     Indication: NEUROENDOCRINE TUMOUR
     Dosage: UNK
     Route: 048
     Dates: start: 20111223, end: 20120221

REACTIONS (1)
  - GENERAL PHYSICAL HEALTH DETERIORATION [None]
